FAERS Safety Report 21614371 (Version 3)
Quarter: 2023Q2

REPORT INFORMATION
  Report Type: Other
  Country: US (occurrence: None)
  Receive Date: 20221118
  Receipt Date: 20230421
  Transmission Date: 20230721
  Serious: Yes (Life-Threatening, Other)
  Sender: FDA-Public Use
  Company Number: US-ROCHE-3218499

PATIENT
  Age: 67 Year
  Sex: Female
  Weight: 63.560 kg

DRUGS (1)
  1. OCREVUS [Suspect]
     Active Substance: OCRELIZUMAB
     Indication: Multiple sclerosis
     Dosage: 300 MG ON DAY 1 AND DAY 15
     Route: 042
     Dates: start: 2019

REACTIONS (4)
  - Clostridium difficile infection [Not Recovered/Not Resolved]
  - Illness [Unknown]
  - Infection [Unknown]
  - Asthenia [Unknown]
